FAERS Safety Report 14841586 (Version 2)
Quarter: 2018Q2

REPORT INFORMATION
  Report Type: Spontaneous
  Country: IN (occurrence: IN)
  Receive Date: 20180503
  Receipt Date: 20180510
  Transmission Date: 20180711
  Serious: Yes (Death)
  Sender: FDA-Public Use
  Company Number: IN-BAYER-2018-084340

PATIENT

DRUGS (1)
  1. ULTRAVIST [Suspect]
     Active Substance: IOPROMIDE
     Dosage: UNK, ONCE
     Dates: start: 20180427, end: 20180427

REACTIONS (4)
  - Dyspnoea [Fatal]
  - Pulse absent [Fatal]
  - Syncope [Fatal]
  - Death [Fatal]

NARRATIVE: CASE EVENT DATE: 20180427
